FAERS Safety Report 10258362 (Version 6)
Quarter: 2014Q4

REPORT INFORMATION
  Report Type: Spontaneous
  Country: US (occurrence: US)
  Receive Date: 20140625
  Receipt Date: 20141103
  Transmission Date: 20150528
  Serious: Yes (Other)
  Sender: FDA-Public Use
  Company Number: US-PFIZER INC-2014171741

PATIENT
  Age: 53 Year
  Sex: Female

DRUGS (4)
  1. LORCET [Concomitant]
     Active Substance: ACETAMINOPHEN\HYDROCODONE BITARTRATE
     Dosage: UNK (300MG - 1200 MG/ NO MORE THAN 3600 MG/D)
  2. GABAPENTIN. [Suspect]
     Active Substance: GABAPENTIN
     Indication: PAIN
     Dosage: UNK
     Route: 048
     Dates: start: 2002
  3. GABAPENTIN. [Suspect]
     Active Substance: GABAPENTIN
     Indication: PAIN
     Dosage: UNK (600 MG 5/ BID 800 MG 4 BID)
     Route: 048
  4. GABAPENTIN. [Suspect]
     Active Substance: GABAPENTIN
     Indication: NEURALGIA
     Dosage: UNK (300 MG/300-3600 MG/D)
     Route: 048

REACTIONS (21)
  - Movement disorder [Not Recovered/Not Resolved]
  - Fall [Unknown]
  - Arachnoiditis [Unknown]
  - Nerve injury [Unknown]
  - Paraplegia [Unknown]
  - Pain [Unknown]
  - Blood pressure abnormal [Unknown]
  - Bone neoplasm [Unknown]
  - Impaired driving ability [Unknown]
  - Vitamin D deficiency [Unknown]
  - Spinal cord injury [Unknown]
  - Hand fracture [Not Recovered/Not Resolved]
  - Impaired self-care [Unknown]
  - Product use issue [Unknown]
  - Drug intolerance [Unknown]
  - Dyskinesia [Unknown]
  - Hyperhidrosis [Unknown]
  - Physical assault [Unknown]
  - Foot fracture [Unknown]
  - Pyrexia [Unknown]
  - Blood pressure increased [Unknown]

NARRATIVE: CASE EVENT DATE: 2002
